FAERS Safety Report 7036502-1 (Version None)
Quarter: 2010Q4

REPORT INFORMATION
  Report Type: 
  Country: None (occurrence: None)
  Receive Date: 20101011
  Receipt Date: 20100930
  Transmission Date: 20110411
  Serious: No
  Sender: FDA-Public Use
  Company Number: US-BIOGENIDEC-2010BI017358

PATIENT
  Sex: Female

DRUGS (1)
  1. TYSABRI [Suspect]
     Indication: MULTIPLE SCLEROSIS
     Route: 042
     Dates: start: 20080415

REACTIONS (8)
  - BALANCE DISORDER [None]
  - EPISTAXIS [None]
  - EXCORIATION [None]
  - FALL [None]
  - OBSESSIVE-COMPULSIVE DISORDER [None]
  - PERIORBITAL HAEMATOMA [None]
  - SECONDARY PROGRESSIVE MULTIPLE SCLEROSIS [None]
  - SKIN LACERATION [None]
